FAERS Safety Report 24553476 (Version 1)
Quarter: 2024Q4

REPORT INFORMATION
  Report Type: Spontaneous
  Country: DE (occurrence: DE)
  Receive Date: 20241028
  Receipt Date: 20241028
  Transmission Date: 20250115
  Serious: No
  Sender: ROCHE
  Company Number: DE-IPSEN Group, Research and Development-2023-27989

PATIENT
  Age: 16 Year
  Sex: Male
  Weight: 54.0 kg

DRUGS (1)
  1. NUTROPIN AQ [Suspect]
     Active Substance: SOMATROPIN
     Indication: Foetal growth restriction
     Route: 065
     Dates: start: 2015

REACTIONS (2)
  - Off label use [Unknown]
  - No adverse event [Unknown]
